FAERS Safety Report 23713039 (Version 1)
Quarter: 2024Q2

REPORT INFORMATION
  Report Type: Spontaneous
  Country: US (occurrence: None)
  Receive Date: 20240405
  Receipt Date: 20240405
  Transmission Date: 20240716
  Serious: Yes (Hospitalization)
  Sender: FDA-Public Use
  Company Number: None

PATIENT
  Sex: Female

DRUGS (3)
  1. KESIMPTA [Suspect]
     Active Substance: OFATUMUMAB
     Indication: Multiple sclerosis
     Dosage: OTHER QUANTITY : INJECT 1 PEN;?FREQUENCY : MONTHLY;?
     Route: 058
     Dates: start: 20230406
  2. AMMONIUM LAC CRE [Concomitant]
  3. JENCYCLA [Concomitant]
     Active Substance: NORETHINDRONE

REACTIONS (4)
  - Pain [None]
  - Sensory disturbance [None]
  - Multiple sclerosis relapse [None]
  - Fatigue [None]
